FAERS Safety Report 8153468-1 (Version None)
Quarter: 2012Q1

REPORT INFORMATION
  Report Type: 
  Country: None (occurrence: None)
  Receive Date: 20120221
  Receipt Date: 20120214
  Transmission Date: 20120608
  Serious: Yes (Hospitalization)
  Sender: FDA-Public Use
  Company Number: CA-B.I. PHARMACEUTICALS,INC./RIDGEFIELD-2012-CN-00312CN

PATIENT
  Age: 80 Year
  Sex: Female
  Weight: 58 kg

DRUGS (7)
  1. PRADAXA [Suspect]
     Dosage: 220 MG
     Route: 065
  2. ASPIRIN [Concomitant]
     Route: 065
  3. ATACAND [Concomitant]
     Route: 065
  4. MULTIVITAMINE(S) [Concomitant]
     Route: 065
  5. CALCIUM + MAGNESIUM [Concomitant]
     Route: 065
  6. CRESTOR [Concomitant]
     Route: 065
  7. METOPROLOL TARTRATE [Concomitant]
     Route: 065

REACTIONS (1)
  - ATRIAL FIBRILLATION [None]
